FAERS Safety Report 5767838 (Version 3)
Quarter: 2015Q2

REPORT INFORMATION
  Report Type: Report from Study
  Country: US (occurrence: US)
  Receive Date: 20050330
  Receipt Date: 20150611
  Transmission Date: 20150821
  Serious: Yes (Congenital Anomaly, Other)
  Sender: FDA-Public Use
  Company Number: US-GLAXOSMITHKLINE-A0543374B

PATIENT
  Sex: Male
  Weight: 1.7 kg

DRUGS (5)
  1. KALETRA [Concomitant]
     Active Substance: LOPINAVIR\RITONAVIR
     Indication: HIV INFECTION
     Route: 064
  2. ZERIT [Concomitant]
     Active Substance: STAVUDINE
     Indication: HIV INFECTION
     Route: 064
  3. LAMIVUDINE. [Suspect]
     Active Substance: LAMIVUDINE
     Indication: HIV INFECTION
     Dosage: 150 MG, BID
     Route: 064
  4. ZERIT [Concomitant]
     Active Substance: STAVUDINE
     Indication: HIV INFECTION
     Route: 064
     Dates: start: 20040817
  5. SPORANOX [Suspect]
     Active Substance: ITRACONAZOLE\SODIUM CHLORIDE
     Route: 064

REACTIONS (10)
  - Cerebral ventricle dilatation [Unknown]
  - Congenital genital malformation [Unknown]
  - Micropenis [Unknown]
  - Brain scan abnormal [Unknown]
  - Foetal growth restriction [Unknown]
  - Umbilical cord abnormality [Unknown]
  - Foetal exposure during pregnancy [Unknown]
  - Microcephaly [Unknown]
  - Brain malformation [Unknown]
  - Meconium stain [Unknown]

NARRATIVE: CASE EVENT DATE: 20040831
